FAERS Safety Report 7133045-1 (Version None)
Quarter: 2010Q4

REPORT INFORMATION
  Report Type: 
  Country: None (occurrence: None)
  Receive Date: 20101202
  Receipt Date: 20101123
  Transmission Date: 20110411
  Serious: Yes (Hospitalization)
  Sender: FDA-Public Use
  Company Number: A0896506A

PATIENT
  Age: 60 Year
  Sex: Female
  Weight: 56.8 kg

DRUGS (10)
  1. PAZOPANIB [Suspect]
     Indication: NON-SMALL CELL LUNG CANCER
     Dosage: 800MG TWICE PER DAY
     Route: 048
     Dates: start: 20100922, end: 20101020
  2. NYSTATIN [Concomitant]
     Dosage: 5ML AS REQUIRED
  3. ADVAIR [Concomitant]
  4. ATIVAN [Concomitant]
     Dates: start: 20100412
  5. HYZAAR [Concomitant]
     Route: 048
     Dates: start: 20081028
  6. PREDNISONE [Concomitant]
     Dosage: 5MG PER DAY
     Route: 048
     Dates: start: 20090622
  7. PROPOXYPHENE HYDROCHLORIDE [Concomitant]
     Dosage: 100MG AS REQUIRED
     Route: 048
     Dates: start: 20100115
  8. SPIRIVA [Concomitant]
     Dosage: 1CAP PER DAY
     Route: 048
     Dates: start: 20081028
  9. PULMICORT [Concomitant]
     Route: 055
     Dates: start: 20081027
  10. TYLENOL-500 [Concomitant]
     Dosage: 235MG AS REQUIRED
     Route: 048
     Dates: start: 20081027

REACTIONS (4)
  - ATAXIA [None]
  - HEMIPARESIS [None]
  - LYMPHOPENIA [None]
  - METASTASES TO CENTRAL NERVOUS SYSTEM [None]
